FAERS Safety Report 13106502 (Version 5)
Quarter: 2017Q3

REPORT INFORMATION
  Report Type: Spontaneous
  Country: US (occurrence: US)
  Receive Date: 20170111
  Receipt Date: 20170817
  Transmission Date: 20171127
  Serious: Yes (Hospitalization)
  Sender: FDA-Public Use
  Company Number: US-TEVA-729151ACC

PATIENT
  Age: 69 Year
  Sex: Female

DRUGS (16)
  1. CIPROFLOXACIN. [Concomitant]
     Active Substance: CIPROFLOXACIN
  2. KETOCONAZOLE. [Concomitant]
     Active Substance: KETOCONAZOLE
  3. LYRICA [Concomitant]
     Active Substance: PREGABALIN
  4. CALCIUM [Concomitant]
     Active Substance: CALCIUM
  5. BACLOFEN. [Concomitant]
     Active Substance: BACLOFEN
  6. COPAXONE [Suspect]
     Active Substance: GLATIRAMER ACETATE
     Indication: MULTIPLE SCLEROSIS
     Route: 058
  7. GABAPENTIN. [Concomitant]
     Active Substance: GABAPENTIN
  8. OMEPRAZOLE. [Concomitant]
     Active Substance: OMEPRAZOLE
  9. VITAMIN D [Concomitant]
     Active Substance: CHOLECALCIFEROL
  10. AMPYRA [Concomitant]
     Active Substance: DALFAMPRIDINE
  11. VESICARE [Concomitant]
     Active Substance: SOLIFENACIN SUCCINATE
  12. TRAMADOL. [Concomitant]
     Active Substance: TRAMADOL
  13. GRAPE SEED [Concomitant]
     Active Substance: HERBALS\VITIS VINIFERA SEED
  14. AMOXI/K.CLAV [Concomitant]
  15. TIZANIDINE. [Concomitant]
     Active Substance: TIZANIDINE
  16. DULOXETINE. [Concomitant]
     Active Substance: DULOXETINE

REACTIONS (9)
  - Drug dose omission [Unknown]
  - Fall [Recovering/Resolving]
  - Nausea [Unknown]
  - Injection site pain [Not Recovered/Not Resolved]
  - Dizziness [Unknown]
  - Injury [Recovering/Resolving]
  - Injection site reaction [Unknown]
  - Gait inability [Unknown]
  - Head injury [Recovering/Resolving]

NARRATIVE: CASE EVENT DATE: 20161102
